FAERS Safety Report 5531384-9 (Version None)
Quarter: 2007Q4

REPORT INFORMATION
  Report Type: 
  Country: None (occurrence: None)
  Receive Date: 20071128
  Receipt Date: 20071116
  Transmission Date: 20080405
  Serious: Yes (Hospitalization)
  Sender: FDA-Public Use
  Company Number: GXKR2007IL09864

PATIENT
  Age: 64 Year
  Sex: Female

DRUGS (2)
  1. WARFARIN SODIUM [Suspect]
     Indication: THROMBOSIS
     Dosage: 5 MG, QD
  2. ENOXAPARIN SODIUM [Concomitant]

REACTIONS (3)
  - ILIAC ARTERY THROMBOSIS [None]
  - INTERNATIONAL NORMALISED RATIO INCREASED [None]
  - PROTEIN S DEFICIENCY [None]
